FAERS Safety Report 8986692 (Version 2)
Quarter: 2013Q1

REPORT INFORMATION
  Report Type: Report from Study
  Country: DE (occurrence: DE)
  Receive Date: 20121227
  Receipt Date: 20130225
  Transmission Date: 20140127
  Serious: Yes (Hospitalization)
  Sender: FDA-Public Use
  Company Number: PHHO2009DE13083

PATIENT
  Sex: 0

DRUGS (8)
  1. DICLOFENAC [Suspect]
     Indication: RHEUMATIC DISORDER
     Dosage: 50 MG, DAILY
     Route: 048
     Dates: start: 20070215, end: 20080830
  2. ZOLEDRONATE [Suspect]
     Indication: BREAST CANCER
     Dosage: 4 MG, DAILY
     Route: 042
     Dates: start: 20080701
  3. HERCEPTIN [Concomitant]
     Indication: BREAST CANCER
     Dosage: 522 MG, DAILY
     Route: 042
     Dates: start: 20080520, end: 20080520
  4. PARACETAMOL [Concomitant]
     Dosage: 1000 MG, UNK
     Route: 048
     Dates: start: 20080520, end: 20080520
  5. PARACETAMOL [Concomitant]
     Dosage: 1000 MG, UNK
     Route: 048
     Dates: start: 20080701, end: 20080701
  6. VITAMIN D [Concomitant]
  7. CALCIUM [Concomitant]
  8. PANTOZOL [Concomitant]
     Indication: ABDOMINAL PAIN UPPER
     Dosage: 20 MG, DAILY
     Route: 048
     Dates: start: 20061012, end: 20080830

REACTIONS (5)
  - Duodenal ulcer [Recovered/Resolved with Sequelae]
  - Pain [Recovered/Resolved]
  - Inflammation [Recovered/Resolved]
  - Gastritis [Recovered/Resolved]
  - Gastritis atrophic [Recovered/Resolved]
